FAERS Safety Report 9014150 (Version 2)
Quarter: 2013Q1

REPORT INFORMATION
  Report Type: Spontaneous
  Country: US (occurrence: US)
  Receive Date: 20130115
  Receipt Date: 20130130
  Transmission Date: 20140127
  Serious: Yes (Other)
  Sender: FDA-Public Use
  Company Number: US-TEVA-379859USA

PATIENT
  Age: 28 Year
  Sex: Female
  Weight: 88.98 kg

DRUGS (1)
  1. PARAGARD 380A [Suspect]
     Indication: CONTRACEPTION
     Route: 015
     Dates: start: 20110322, end: 20111011

REACTIONS (2)
  - Device dislocation [Recovered/Resolved]
  - Congenital uterine anomaly [Unknown]
